FAERS Safety Report 14719748 (Version 1)
Quarter: 2018Q1

REPORT INFORMATION
  Report Type: Spontaneous
  Country: US (occurrence: US)
  Receive Date: 20180330
  Receipt Date: 20180330
  Transmission Date: 20180509
  Serious: Yes (Hospitalization)
  Sender: FDA-Public Use
  Company Number: None

PATIENT
  Age: 6 Year
  Sex: Male
  Weight: 18 kg

DRUGS (14)
  1. PROPOFOL. [Suspect]
     Active Substance: PROPOFOL
  2. G-CSF (FILGRASTIM, AMGEN) [Suspect]
     Active Substance: FILGRASTIM
     Dates: end: 20110915
  3. CYCLOPHOSPHAMIDE. [Suspect]
     Active Substance: CYCLOPHOSPHAMIDE
     Dates: end: 20110915
  4. AMOXICILLIN. [Concomitant]
     Active Substance: AMOXICILLIN
  5. DACTINOMYCIN [Suspect]
     Active Substance: DACTINOMYCIN
     Dates: end: 20110915
  6. MESNA. [Suspect]
     Active Substance: MESNA
     Dates: end: 20110925
  7. MORPHINE [Suspect]
     Active Substance: MORPHINE
  8. VINCRISTINE SULFATE. [Suspect]
     Active Substance: VINCRISTINE SULFATE
     Dates: end: 20110915
  9. CAMPTOSAR [Suspect]
     Active Substance: IRINOTECAN HYDROCHLORIDE
     Dates: end: 20110825
  10. CEFEPIME [Concomitant]
     Active Substance: CEFEPIME HYDROCHLORIDE
  11. FENTANYL. [Suspect]
     Active Substance: FENTANYL
  12. OXYCODONE [Suspect]
     Active Substance: OXYCODONE
  13. RANITIDINE. [Suspect]
     Active Substance: RANITIDINE
  14. DEXAMETHASONE. [Suspect]
     Active Substance: DEXAMETHASONE

REACTIONS (6)
  - Angioedema [None]
  - Swelling [None]
  - Swelling face [None]
  - Respiratory distress [None]
  - Pneumothorax [None]
  - Stridor [None]

NARRATIVE: CASE EVENT DATE: 20110915
